FAERS Safety Report 7644775 (Version 7)
Quarter: 2012Q4

REPORT INFORMATION
  Report Type: 
  Country: US (occurrence: US)
  Receive Date: 20101028
  Receipt Date: 20121018
  Transmission Date: 20130627
  Serious: Yes (Hospitalization, Other)
  Sender: FDA-Public Use
  Company Number: US-ROCHE-722613

PATIENT
  Age: 13 Year
  Sex: Male
  Weight: 61.2 kg

DRUGS (3)
  1. ACCUTANE [Suspect]
     Indication: ACNE
     Route: 048
     Dates: start: 20010316, end: 200108
  2. ACCUTANE [Suspect]
     Route: 048
     Dates: start: 20030916, end: 20040204
  3. ADVIL [Concomitant]

REACTIONS (9)
  - Crohn^s disease [Unknown]
  - Inflammatory bowel disease [Unknown]
  - Small intestinal obstruction [Unknown]
  - Nephrolithiasis [Unknown]
  - Anxiety [Unknown]
  - Blood alkaline phosphatase increased [Recovered/Resolved]
  - Arthralgia [Unknown]
  - Chapped lips [Unknown]
  - Irritable bowel syndrome [Unknown]
